FAERS Safety Report 4817305-2 (Version None)
Quarter: 2005Q4

REPORT INFORMATION
  Report Type: 
  Country: None (occurrence: None)
  Receive Date: 20051018
  Receipt Date: 20041028
  Transmission Date: 20060501
  Serious: Yes (Other)
  Sender: FDA-Public Use
  Company Number: PHEH2004US11679

PATIENT
  Sex: Female

DRUGS (3)
  1. ZOMETA [Suspect]
     Indication: BREAST CANCER
     Dosage: 4MG QMO, INTRAVENOUS
     Route: 042
  2. CALCIUM W/VITAMIN D NOS (CALCIUM, VITAMIN D NOS) [Concomitant]
  3. CALCIUM (CALCIUM) SOLUTION FOR INFUSION [Concomitant]

REACTIONS (1)
  - HYPOCALCAEMIA [None]
